FAERS Safety Report 10191688 (Version 2)
Quarter: 2014Q2

REPORT INFORMATION
  Report Type: Report from Study
  Country: DE (occurrence: DE)
  Receive Date: 20140523
  Receipt Date: 20140529
  Transmission Date: 20141212
  Serious: Yes (Hospitalization)
  Sender: FDA-Public Use
  Company Number: DE-ASTRAZENECA-2014SE35093

PATIENT
  Age: 28387 Day
  Sex: Male

DRUGS (10)
  1. AZD6140 [Suspect]
     Indication: CORONARY ARTERY DISEASE
     Route: 048
     Dates: start: 20120717
  2. RAMIPRIL [Concomitant]
     Indication: HYPERTENSION
     Route: 048
  3. NITRO [Concomitant]
     Indication: ANGINA PECTORIS
     Route: 055
     Dates: start: 20121231
  4. NOVALGIN [Concomitant]
     Indication: CONCUSSION
     Route: 048
     Dates: start: 20140305, end: 20140308
  5. SIMVASTATIN [Concomitant]
     Indication: HYPERCHOLESTEROLAEMIA
     Route: 048
     Dates: start: 20140305, end: 20140319
  6. PROSTAGUTT [Concomitant]
     Indication: BENIGN PROSTATIC HYPERPLASIA
     Route: 048
     Dates: start: 20140305
  7. BELOC ZOK [Concomitant]
     Indication: HYPERTENSION
     Route: 048
  8. PRAVASTATIN [Concomitant]
     Indication: HYPERCHOLESTEROLAEMIA
     Route: 048
     Dates: end: 20140304
  9. PARACETAMOL [Concomitant]
     Indication: CONCUSSION
     Route: 048
     Dates: start: 20140305, end: 20140308
  10. ASA [Concomitant]
     Route: 048

REACTIONS (1)
  - Gastritis haemorrhagic [Not Recovered/Not Resolved]
